FAERS Safety Report 13585753 (Version 1)
Quarter: 2017Q2

REPORT INFORMATION
  Report Type: Not Available
  Country: LT (occurrence: LT)
  Receive Date: 20170526
  Receipt Date: 20170526
  Transmission Date: 20170830
  Serious: Yes (Other)
  Sender: FDA-Public Use
  Company Number: LT-ANIPHARMA-2017-LT-000002

PATIENT
  Age: 30 Year
  Sex: Female

DRUGS (2)
  1. LAMOTRIGINE. [Suspect]
     Active Substance: LAMOTRIGINE
     Dosage: 700 MG
  2. VALPROIC ACID (NON-SPECIFIC) [Suspect]
     Active Substance: VALPROIC ACID
     Dosage: 40 TO 45 GRAMS
     Route: 065

REACTIONS (4)
  - Seizure [Unknown]
  - Vitamin D deficiency [Unknown]
  - Suicide attempt [None]
  - Hypocalcaemia [Unknown]
